FAERS Safety Report 5744822-3 (Version None)
Quarter: 2008Q2

REPORT INFORMATION
  Report Type: 
  Country: None (occurrence: None)
  Receive Date: 20080520
  Receipt Date: 20080509
  Transmission Date: 20081010
  Serious: Yes (Hospitalization)
  Sender: FDA-Public Use
  Company Number: JP-PFIZER INC-2008040955

PATIENT
  Age: 90 Year
  Sex: Female

DRUGS (4)
  1. EPLERENONE [Suspect]
     Indication: HYPERTENSION
     Dosage: DAILY DOSE:25MG
     Route: 048
  2. ATELEC [Concomitant]
     Route: 048
  3. OLMETEC [Concomitant]
     Route: 048
  4. FLUITRAN [Concomitant]
     Route: 048

REACTIONS (1)
  - HEPATIC FUNCTION ABNORMAL [None]
